FAERS Safety Report 18501929 (Version 1)
Quarter: 2020Q4

REPORT INFORMATION
  Report Type: Spontaneous
  Country: NL (occurrence: NL)
  Receive Date: 20201113
  Receipt Date: 20201113
  Transmission Date: 20210114
  Serious: Yes (Hospitalization)
  Sender: FDA-Public Use
  Company Number: NL-TEVA-2020-NL-1847717

PATIENT
  Age: 70 Year
  Sex: Female
  Weight: 55 kg

DRUGS (2)
  1. TIOTROPIUM INHALATIECAPSULE 18UG / SPIRIVA INHALPDR 18MCG [Concomitant]
     Dosage: 18 MICROGRAMS (MICROGRAMS),
  2. IPRATROPIUM INHALATIECAPSULE 40UG / IPRATROPIUM CYCLOCAPS INHALPOEDER [Suspect]
     Active Substance: IPRATROPIUM
     Indication: CHRONIC OBSTRUCTIVE PULMONARY DISEASE
     Dosage: 2X USED ONCE AFTER FIRST PRESCRIPTION, UNIT DOSE: 1 DOSAGE FORMS,
     Route: 065
     Dates: start: 20201015, end: 20201016

REACTIONS (3)
  - Migraine [Recovering/Resolving]
  - Confusional state [Recovering/Resolving]
  - Dysphonia [Recovering/Resolving]

NARRATIVE: CASE EVENT DATE: 20201016
